FAERS Safety Report 22647685 (Version 1)
Quarter: 2023Q2

REPORT INFORMATION
  Report Type: Report from Study
  Country: EG (occurrence: EG)
  Receive Date: 20230628
  Receipt Date: 20230628
  Transmission Date: 20230721
  Serious: Yes (Other)
  Sender: FDA-Public Use
  Company Number: EG-002147023-NVSC2022EG058812

PATIENT
  Sex: Female

DRUGS (5)
  1. COSENTYX [Suspect]
     Active Substance: SECUKINUMAB
     Indication: Psoriasis
     Dosage: 150 MG (STARTED BY THE END OF 2016-START OF 2017 AND STOPPED BY THE END OF 2017) (OLD DOSE : ONE PEN
     Route: 058
     Dates: start: 2017, end: 2017
  2. COSENTYX [Suspect]
     Active Substance: SECUKINUMAB
     Dosage: 150 MG
     Route: 058
     Dates: end: 2020
  3. COSENTYX [Suspect]
     Active Substance: SECUKINUMAB
     Dosage: 2 DOSAGE FORM, Q2MO (2 COSENTYX 75 MGS PENS MONTHLY FOR 2 MONTHS AS OFF-LABEL LOADING DOSE FOLLOWED
     Route: 065
     Dates: start: 20230405
  4. BETAMETHASONE DIPROPIONATE [Concomitant]
     Active Substance: BETAMETHASONE DIPROPIONATE
     Indication: Psoriasis
     Dosage: UNK (6 DAYS AGO)
     Route: 065
  5. ELICASAL [Concomitant]
     Indication: Psoriasis
     Dosage: UNK (3 WEEKS AGO)
     Route: 065

REACTIONS (15)
  - Lethargy [Recovered/Resolved]
  - Depression [Recovered/Resolved]
  - Weight increased [Recovered/Resolved]
  - Peripheral swelling [Recovered/Resolved]
  - Dysstasia [Recovering/Resolving]
  - Fat tissue increased [Unknown]
  - Memory impairment [Not Recovered/Not Resolved]
  - Delivery [Unknown]
  - Psoriasis [Recovering/Resolving]
  - Maternal exposure during pregnancy [Unknown]
  - Live birth [Unknown]
  - Product dispensing issue [Unknown]
  - Product prescribing error [Recovered/Resolved]
  - Off label use [Not Recovered/Not Resolved]
  - Drug ineffective [Not Recovered/Not Resolved]

NARRATIVE: CASE EVENT DATE: 20170101
